FAERS Safety Report 14949194 (Version 2)
Quarter: 2018Q2

REPORT INFORMATION
  Report Type: Spontaneous
  Country: JP (occurrence: JP)
  Receive Date: 20180529
  Receipt Date: 20180628
  Transmission Date: 20180711
  Serious: Yes (Death, Life-Threatening)
  Sender: FDA-Public Use
  Company Number: JP-MITSUBISHI TANABE PHARMA CORPORATION-MTPC2018-0010436

PATIENT
  Age: 80 Year
  Sex: Female
  Weight: 56 kg

DRUGS (11)
  1. AMBROXOL HYDROCHLORIDE [Concomitant]
     Active Substance: AMBROXOL HYDROCHLORIDE
     Route: 048
     Dates: start: 20170117, end: 20170322
  2. RILUZOLE. [Concomitant]
     Active Substance: RILUZOLE
     Route: 048
     Dates: start: 20161014, end: 20170322
  3. TRAZODONE HYDROCHLORIDE. [Concomitant]
     Active Substance: TRAZODONE HYDROCHLORIDE
     Route: 048
     Dates: start: 20161214, end: 20170322
  4. BAKUMONDOTO [Concomitant]
     Active Substance: HERBALS
     Route: 048
     Dates: start: 20170117, end: 20170322
  5. MORPHINE HYDROCHLORIDE HYDRATE [Concomitant]
     Active Substance: MORPHINE HYDROCHLORIDE
     Route: 042
     Dates: start: 20170321, end: 20170321
  6. RADICUT [Suspect]
     Active Substance: EDARAVONE
     Indication: AMYOTROPHIC LATERAL SCLEROSIS
     Route: 041
     Dates: start: 20161213, end: 20170322
  7. FYCOMPA [Concomitant]
     Active Substance: PERAMPANEL
     Route: 048
     Dates: start: 20170214, end: 20170322
  8. MEDICON [Concomitant]
     Active Substance: DEXTROMETHORPHAN HYDROBROMIDE
     Route: 048
     Dates: start: 20170117, end: 20170322
  9. KAKKONTO [Concomitant]
     Active Substance: HERBALS
     Route: 048
     Dates: end: 20170322
  10. CARBOCISTEINE [Concomitant]
     Active Substance: CARBOCYSTEINE
     Route: 048
     Dates: start: 20170120, end: 20170322
  11. TETRAMIDE [Concomitant]
     Active Substance: MIANSERIN
     Route: 048
     Dates: start: 20161214, end: 20170322

REACTIONS (1)
  - Respiratory failure [Fatal]

NARRATIVE: CASE EVENT DATE: 20170322
